FAERS Safety Report 5061278-7 (Version None)
Quarter: 2006Q3

REPORT INFORMATION
  Report Type: 
  Country: None (occurrence: None)
  Receive Date: 20060719
  Receipt Date: 20060719
  Transmission Date: 20061208
  Serious: Yes (Hospitalization)
  Sender: FDA-Public Use
  Company Number: None

PATIENT
  Age: 30 Year
  Sex: Female

DRUGS (5)
  1. LITHIUM [Suspect]
     Indication: BIPOLAR DISORDER
     Dosage: 300 MG TID
     Dates: start: 20030601
  2. CARBAMAZEPINE [Concomitant]
  3. TOPIRAMATE [Concomitant]
  4. GABAPENTIN [Concomitant]
  5. SEROQUEL [Concomitant]

REACTIONS (1)
  - SYNCOPE [None]
